FAERS Safety Report 8859731 (Version 1)
Quarter: 2012Q4

REPORT INFORMATION
  Report Type: 
  Country: US (occurrence: US)
  Receive Date: 20121025
  Receipt Date: 20121025
  Transmission Date: 20130627
  Serious: No
  Sender: FDA-Public Use
  Company Number: US-ABBOTT-12P-163-0902604-00

PATIENT
  Age: 31 None
  Sex: Female
  Weight: 68.1 kg

DRUGS (5)
  1. LUPRON DEPOT 3.75 MG [Suspect]
     Indication: ENDOMETRIOSIS
     Dates: start: 20110721, end: 201110
  2. LUPRON DEPOT 3.75 MG [Suspect]
     Route: 030
     Dates: start: 201112, end: 201112
  3. LUPRON DEPOT [Suspect]
     Indication: ENDOMETRIOSIS
     Route: 030
     Dates: start: 20111108, end: 20111108
  4. TOPAMAX [Concomitant]
     Indication: MIGRAINE
  5. ADBACK THERAPY [Concomitant]
     Indication: PRODUCT USED FOR UNKNOWN INDICATION

REACTIONS (8)
  - Paraesthesia [Recovered/Resolved]
  - Sensory loss [Not Recovered/Not Resolved]
  - Migraine [Recovered/Resolved]
  - Injection site pain [Recovered/Resolved]
  - Nausea [Not Recovered/Not Resolved]
  - Incorrect drug dosage form administered [Unknown]
  - Hypoaesthesia [Not Recovered/Not Resolved]
  - Incorrect dose administered [Unknown]
